FAERS Safety Report 20807422 (Version 3)
Quarter: 2022Q3

REPORT INFORMATION
  Report Type: Spontaneous
  Country: US (occurrence: None)
  Receive Date: 20220510
  Receipt Date: 20220705
  Transmission Date: 20221026
  Serious: Yes (Other)
  Sender: FDA-Public Use
  Company Number: US-ROCHE-3091498

PATIENT
  Age: 15 Year
  Sex: Male
  Weight: 48.3 kg

DRUGS (1)
  1. HEMLIBRA [Suspect]
     Active Substance: EMICIZUMAB-KXWH
     Indication: Factor VII deficiency
     Dosage: STRENGTH 105 MG/0.7ML
     Route: 058
     Dates: start: 20220404

REACTIONS (3)
  - Muscle haemorrhage [Unknown]
  - Haematoma muscle [Recovered/Resolved]
  - Pain [Recovered/Resolved]

NARRATIVE: CASE EVENT DATE: 20220426
